FAERS Safety Report 24825886 (Version 1)
Quarter: 2025Q1

REPORT INFORMATION
  Report Type: Spontaneous
  Country: CN (occurrence: US)
  Receive Date: 20250109
  Receipt Date: 20250109
  Transmission Date: 20250409
  Serious: Yes (Hospitalization)
  Sender: TAKEDA
  Company Number: CN-JNJFOC-20250105856

PATIENT
  Age: 68 Year
  Sex: Female

DRUGS (4)
  1. VELCADE [Suspect]
     Active Substance: BORTEZOMIB
     Indication: Plasma cell myeloma
     Dosage: 1.3 MILLIGRAM/SQ. METER, QD
     Dates: start: 20240919, end: 20240919
  2. DEXAMETHASONE [Suspect]
     Active Substance: DEXAMETHASONE
     Indication: Plasma cell myeloma
     Dosage: 20 MILLIGRAM, QD
     Dates: start: 20240919, end: 20240919
  3. DARATUMUMAB [Suspect]
     Active Substance: DARATUMUMAB
     Indication: Plasma cell myeloma
     Dosage: 1800 MILLIGRAM, QD
     Dates: start: 20240919, end: 20240919
  4. ACYCLOVIR DENK [Concomitant]
     Indication: Viral infection
     Dosage: 400 MILLIGRAM, BID
     Dates: start: 20240919, end: 20240919

REACTIONS (1)
  - H1N1 influenza [Not Recovered/Not Resolved]

NARRATIVE: CASE EVENT DATE: 20241224
